FAERS Safety Report 16236590 (Version 1)
Quarter: 2019Q2

REPORT INFORMATION
  Report Type: Spontaneous
  Country: US (occurrence: US)
  Receive Date: 20190425
  Receipt Date: 20190425
  Transmission Date: 20190711
  Serious: No
  Sender: FDA-Public Use
  Company Number: US-B.I. PHARMACEUTICALS,INC./RIDGEFIELD-2019-BI-018667

PATIENT
  Age: 69 Year
  Sex: Male

DRUGS (4)
  1. JARDIANCE [Suspect]
     Active Substance: EMPAGLIFLOZIN
     Dosage: 1 TABLET ONCE A DAY;  STRENGTH: 10 MG; FORMULATION: TABLET ACTION(S) TAKEN : DOSE NOT CHANGED
     Route: 048
     Dates: start: 2019
  2. JARDIANCE [Suspect]
     Active Substance: EMPAGLIFLOZIN
     Indication: TYPE 1 DIABETES MELLITUS
     Dosage: 1 TABLET ONCE A DAY; STRENGTH: 25 MG; FORMULATION: TABLET ACTION(S) TAKEN WITH PRODUCT: DRUG REDUCED
     Route: 048
     Dates: start: 201806, end: 2019
  3. SOTALOL. [Concomitant]
     Active Substance: SOTALOL
     Indication: ATRIAL FIBRILLATION
     Dosage: FORMULATION: TABLET;
     Route: 048
  4. METHIMAZOLE. [Concomitant]
     Active Substance: METHIMAZOLE
     Indication: HYPERTHYROIDISM
     Route: 065

REACTIONS (2)
  - Hypoglycaemia [Recovered/Resolved]
  - Off label use [Unknown]

NARRATIVE: CASE EVENT DATE: 2018
